FAERS Safety Report 23116764 (Version 2)
Quarter: 2023Q4

REPORT INFORMATION
  Report Type: Spontaneous
  Country: US (occurrence: US)
  Receive Date: 20231027
  Receipt Date: 20231106
  Transmission Date: 20240110
  Serious: Yes (Hospitalization, Other)
  Sender: FDA-Public Use
  Company Number: US-SLATERUN-2023SRLIT00008

PATIENT
  Age: 35 Year
  Sex: Female

DRUGS (1)
  1. BUPROPION HYDROCHLORIDE [Suspect]
     Active Substance: BUPROPION HYDROCHLORIDE
     Indication: Product used for unknown indication
     Route: 065

REACTIONS (4)
  - Cardiogenic shock [Recovered/Resolved]
  - Ventricular tachycardia [Recovered/Resolved]
  - Intentional overdose [Unknown]
  - Seizure [Recovered/Resolved]
